FAERS Safety Report 8154603-1 (Version None)
Quarter: 2012Q1

REPORT INFORMATION
  Report Type: 
  Country: None (occurrence: None)
  Receive Date: 20120221
  Receipt Date: 20120213
  Transmission Date: 20120608
  Serious: Yes (Life-Threatening, Hospitalization, Other)
  Sender: FDA-Public Use
  Company Number: RU-ROCHE-1039016

PATIENT
  Sex: Female

DRUGS (3)
  1. PEGINTERFERON ALFA-2A [Suspect]
     Indication: HEPATITIS C
     Route: 058
  2. COPEGUS [Suspect]
     Indication: HEPATITIS C
     Route: 048
     Dates: start: 20111024
  3. BLINDED BI 201335 (HCV PROTEASE INHIBITOR) [Suspect]
     Indication: HEPATITIS C

REACTIONS (2)
  - TOXIC SKIN ERUPTION [None]
  - APPENDICITIS [None]
